FAERS Safety Report 10715726 (Version 1)
Quarter: 2015Q1

REPORT INFORMATION
  Report Type: Spontaneous
  Country: US (occurrence: US)
  Receive Date: 20150116
  Receipt Date: 20150116
  Transmission Date: 20150721
  Serious: Yes (Death, Hospitalization)
  Sender: FDA-Public Use
  Company Number: US-JNJFOC-20150106918

PATIENT
  Age: 34 Year
  Sex: Female

DRUGS (5)
  1. ACETAMINOPHEN/DEXTROMETHORPHAN/DOXYLAMINE/PSEUDOEPHEDRINE [Suspect]
     Active Substance: ACETAMINOPHEN\DEXTROMETHORPHAN\DOXYLAMINE\PSEUDOEPHEDRINE
     Indication: SUICIDE ATTEMPT
     Route: 048
  2. ASENAPINE [Suspect]
     Active Substance: ASENAPINE
     Indication: SUICIDE ATTEMPT
     Route: 048
  3. DIPHENHYDRAMINE [Suspect]
     Active Substance: DIPHENHYDRAMINE
     Indication: SUICIDE ATTEMPT
     Route: 048
  4. IBUPROFEN. [Suspect]
     Active Substance: IBUPROFEN
     Indication: SUICIDE ATTEMPT
     Route: 048
  5. ACETAMINOPHEN/PHENYLEPHRINE [Suspect]
     Active Substance: ACETAMINOPHEN\PHENYLEPHRINE
     Indication: SUICIDE ATTEMPT
     Route: 048

REACTIONS (1)
  - Toxicity to various agents [Fatal]
